FAERS Safety Report 6686846-8 (Version None)
Quarter: 2010Q2

REPORT INFORMATION
  Report Type: 
  Country: None (occurrence: None)
  Receive Date: 20100416
  Receipt Date: 20100416
  Transmission Date: 20101027
  Serious: No
  Sender: FDA-Public Use
  Company Number: None

PATIENT
  Age: 31 Year
  Sex: Female

DRUGS (2)
  1. MEPERIDINE HCL [Suspect]
  2. HYDROXYZINE [Suspect]

REACTIONS (5)
  - ERYTHEMA [None]
  - INCORRECT ROUTE OF DRUG ADMINISTRATION [None]
  - INTERCEPTED DRUG ADMINISTRATION ERROR [None]
  - MEDICATION ERROR [None]
  - SKIN WARM [None]
